FAERS Safety Report 4714985-7 (Version None)
Quarter: 2005Q3

REPORT INFORMATION
  Report Type: 
  Country: None (occurrence: None)
  Receive Date: 20050715
  Receipt Date: 20050707
  Transmission Date: 20060218
  Serious: Yes (Hospitalization)
  Sender: FDA-Public Use
  Company Number: SE-BOEHRINGER INGELHEIM PHARMACEUTICALS, INC.-2005-SW-00304SW

PATIENT
  Sex: Female

DRUGS (4)
  1. SIFROL TAB. 0.18 MG [Suspect]
     Indication: RESTLESS LEGS SYNDROME
     Route: 048
     Dates: start: 20050419, end: 20050419
  2. SIFROL TAB. 0.18 MG [Suspect]
     Dates: start: 20050420, end: 20050421
  3. NEXIUM [Concomitant]
  4. IDEOS [Concomitant]

REACTIONS (3)
  - DIZZINESS [None]
  - NAUSEA [None]
  - VOMITING [None]
